FAERS Safety Report 4409506-2 (Version None)
Quarter: 2004Q3

REPORT INFORMATION
  Report Type: 
  Country: None (occurrence: None)
  Receive Date: 20040728
  Receipt Date: 20040604
  Transmission Date: 20050211
  Serious: No
  Sender: FDA-Public Use
  Company Number: 200412220FR

PATIENT
  Sex: Male

DRUGS (3)
  1. ARAVA [Suspect]
     Indication: RHEUMATOID ARTHRITIS
     Route: 048
     Dates: start: 20040101
  2. HERBAL PREPARATION [Concomitant]
  3. HOMEOPATIC PREPARATION [Concomitant]

REACTIONS (2)
  - FIBRIN D DIMER INCREASED [None]
  - PAIN IN EXTREMITY [None]
